FAERS Safety Report 4290531-X (Version None)
Quarter: 2004Q1

REPORT INFORMATION
  Report Type: 
  Country: None (occurrence: None)
  Receive Date: 20040126
  Receipt Date: 20031031
  Transmission Date: 20041129
  Serious: No
  Sender: FDA-Public Use
  Company Number: USA030948081

PATIENT
  Age: 68 Year
  Sex: Female

DRUGS (1)
  1. FORTEO [Suspect]
     Indication: OSTEOPOROSIS
     Dosage: 20 UGDAY
     Dates: start: 20030401

REACTIONS (3)
  - BACK PAIN [None]
  - COMPRESSION FRACTURE [None]
  - DIARRHOEA [None]
